FAERS Safety Report 20457298 (Version 1)
Quarter: 2022Q1

REPORT INFORMATION
  Report Type: Report from Study
  Country: US (occurrence: US)
  Receive Date: 20220210
  Receipt Date: 20220210
  Transmission Date: 20220423
  Serious: Yes (Hospitalization, Other)
  Sender: FDA-Public Use
  Company Number: US-ALLERGAN-2205043US

PATIENT

DRUGS (2)
  1. DALBAVANCIN HYDROCHLORIDE [Suspect]
     Active Substance: DALBAVANCIN HYDROCHLORIDE
     Indication: Product used for unknown indication
     Dosage: 500 MG, SINGLE
  2. DALBAVANCIN HYDROCHLORIDE [Suspect]
     Active Substance: DALBAVANCIN HYDROCHLORIDE
     Dosage: 1000 MG, SINGLE

REACTIONS (4)
  - Sepsis [Unknown]
  - Pyrexia [Unknown]
  - Arthralgia [Unknown]
  - Weight decreased [Unknown]
